FAERS Safety Report 7030034-2 (Version None)
Quarter: 2010Q4

REPORT INFORMATION
  Report Type: 
  Country: None (occurrence: None)
  Receive Date: 20101006
  Receipt Date: 20100927
  Transmission Date: 20110411
  Serious: No
  Sender: FDA-Public Use
  Company Number: KR-JNJFOC-20100908672

PATIENT
  Age: 9 Decade
  Sex: Female

DRUGS (1)
  1. DURAGESIC-100 [Suspect]
     Indication: PAIN IN EXTREMITY
     Route: 062

REACTIONS (2)
  - DECREASED APPETITE [None]
  - DRUG ADMINISTERED AT INAPPROPRIATE SITE [None]
